FAERS Safety Report 5450638-8 (Version None)
Quarter: 2007Q3

REPORT INFORMATION
  Report Type: 
  Country: None (occurrence: None)
  Receive Date: 20070912
  Receipt Date: 20070912
  Transmission Date: 20080115
  Serious: Yes (Death)
  Sender: FDA-Public Use
  Company Number: US-ABBOTT-07P-163-0377631-00

PATIENT
  Sex: Female

DRUGS (4)
  1. HUMIRA [Suspect]
     Indication: RHEUMATOID ARTHRITIS
     Route: 065
     Dates: start: 20040101
  2. TGAAC94 [Suspect]
     Indication: ARTHRITIS
     Route: 050
     Dates: start: 20070226, end: 20070702
  3. METHOTREXATE [Concomitant]
     Indication: DRUG USE FOR UNKNOWN INDICATION
     Route: 065
  4. PREDNISONE [Concomitant]
     Indication: DRUG USE FOR UNKNOWN INDICATION
     Route: 065

REACTIONS (8)
  - FATIGUE [None]
  - HAEMORRHAGE [None]
  - HEPATIC FAILURE [None]
  - HERPES SIMPLEX [None]
  - HISTOPLASMOSIS DISSEMINATED [None]
  - MUSCULOSKELETAL STIFFNESS [None]
  - UNEVALUABLE EVENT [None]
  - VOMITING [None]
